FAERS Safety Report 16551991 (Version 6)
Quarter: 2021Q2

REPORT INFORMATION
  Report Type: Report from Study
  Country: US (occurrence: US)
  Receive Date: 20190710
  Receipt Date: 20210505
  Transmission Date: 20210716
  Serious: Yes (Hospitalization, Other)
  Sender: FDA-Public Use
  Company Number: US-GILEAD-2019-0410395

PATIENT
  Age: 10 Year
  Sex: Female
  Weight: 35 kg

DRUGS (12)
  1. ONDANSETRON [Concomitant]
     Active Substance: ONDANSETRON
  2. AMBRISENTAN [Suspect]
     Active Substance: AMBRISENTAN
     Indication: PORTAL HYPERTENSION
     Dosage: 5 MG, QD
     Route: 065
     Dates: start: 20190423
  3. SILDENAFIL. [Suspect]
     Active Substance: SILDENAFIL
     Indication: PORTAL HYPERTENSION
     Dosage: 20 MG, TID
     Route: 065
     Dates: start: 20190425
  4. AMBRISENTAN [Suspect]
     Active Substance: AMBRISENTAN
     Indication: PULMONARY HYPERTENSION
  5. CYPROHEPTADINE. [Concomitant]
     Active Substance: CYPROHEPTADINE
  6. ORENITRAM [Suspect]
     Active Substance: TREPROSTINIL
     Indication: PULMONARY HYPERTENSION
     Dosage: 5 MG, Q8H
     Route: 048
     Dates: start: 20210303
  7. FEROSUL [Concomitant]
     Active Substance: FERROUS SULFATE
  8. OMEPRAZOLE. [Concomitant]
     Active Substance: OMEPRAZOLE
  9. REMODULIN [Suspect]
     Active Substance: TREPROSTINIL
     Indication: PULMONARY ARTERIAL HYPERTENSION
     Dosage: UNK
     Route: 058
  10. ORENITRAM [Suspect]
     Active Substance: TREPROSTINIL
     Dosage: UNK
     Route: 048
  11. GUANFACINE. [Concomitant]
     Active Substance: GUANFACINE
  12. LASIX [Concomitant]
     Active Substance: FUROSEMIDE

REACTIONS (20)
  - Oedema [Unknown]
  - Ascites [Unknown]
  - Eye pain [Unknown]
  - Dehydration [Unknown]
  - Back pain [Not Recovered/Not Resolved]
  - Staphylococcal bacteraemia [Recovered/Resolved]
  - Diarrhoea [Unknown]
  - Fatigue [Unknown]
  - Pain [Unknown]
  - Contusion [Unknown]
  - Nausea [Not Recovered/Not Resolved]
  - Off label use [Not Recovered/Not Resolved]
  - Catheter placement [Unknown]
  - Vomiting [Unknown]
  - Arthralgia [Not Recovered/Not Resolved]
  - Hepatic failure [Unknown]
  - Abdominal pain [Not Recovered/Not Resolved]
  - Eye swelling [Unknown]
  - Pain in extremity [Not Recovered/Not Resolved]
  - Headache [Not Recovered/Not Resolved]

NARRATIVE: CASE EVENT DATE: 20190423
